FAERS Safety Report 25144360 (Version 1)
Quarter: 2025Q2

REPORT INFORMATION
  Report Type: Spontaneous
  Country: IT (occurrence: IT)
  Receive Date: 20250401
  Receipt Date: 20250401
  Transmission Date: 20250717
  Serious: Yes (Other)
  Sender: UNICHEM
  Company Number: IT-UNICHEM LABORATORIES LIMITED-UNI-2025-IT-001648

PATIENT

DRUGS (5)
  1. AMIODARONE [Suspect]
     Active Substance: AMIODARONE
     Indication: Atrial fibrillation
     Route: 048
  2. AMIODARONE [Suspect]
     Active Substance: AMIODARONE
     Route: 048
  3. PERINDOPRIL [Concomitant]
     Active Substance: PERINDOPRIL
     Indication: Hypertension
     Route: 065
  4. INDAPAMIDE [Concomitant]
     Active Substance: INDAPAMIDE
     Indication: Hypertension
     Route: 065
  5. AMLODIPINE [Concomitant]
     Active Substance: AMLODIPINE BESYLATE
     Indication: Hypertension
     Route: 065

REACTIONS (4)
  - Cornea verticillata [Recovering/Resolving]
  - Ocular toxicity [Recovering/Resolving]
  - Hypothyroidism [Unknown]
  - Interstitial lung disease [Recovering/Resolving]
